FAERS Safety Report 8095468-6 (Version None)
Quarter: 2012Q1

REPORT INFORMATION
  Report Type: 
  Country: None (occurrence: None)
  Receive Date: 20120129
  Receipt Date: 20111216
  Transmission Date: 20120608
  Serious: No
  Sender: FDA-Public Use
  Company Number: US-ABBOTT-11P-163-0884299-00

PATIENT
  Sex: Female

DRUGS (5)
  1. HUMIRA [Suspect]
     Indication: RHEUMATOID ARTHRITIS
     Route: 058
     Dates: start: 20111101
  2. UNKNOWN MEDICATION [Concomitant]
     Indication: DEPRESSION
  3. METHOTREXATE [Concomitant]
     Indication: PRODUCT USED FOR UNKNOWN INDICATION
  4. FOLIC ACID [Concomitant]
     Indication: PRODUCT USED FOR UNKNOWN INDICATION
  5. UNKNOWN MEDICATION [Concomitant]
     Indication: HYPERTENSION

REACTIONS (10)
  - RETCHING [None]
  - HEADACHE [None]
  - CLAUSTROPHOBIA [None]
  - VOMITING [None]
  - HYPERACUSIS [None]
  - ABDOMINAL PAIN UPPER [None]
  - NAUSEA [None]
  - ANXIETY [None]
  - DIZZINESS [None]
  - HYPOAESTHESIA [None]
